FAERS Safety Report 22293258 (Version 1)
Quarter: 2023Q2

REPORT INFORMATION
  Report Type: Spontaneous
  Country: US (occurrence: US)
  Receive Date: 20230508
  Receipt Date: 20230508
  Transmission Date: 20230722
  Serious: No
  Sender: FDA-Public Use
  Company Number: US-GBT-022196

PATIENT
  Age: 4 Year
  Sex: Male

DRUGS (2)
  1. OXBRYTA [Suspect]
     Active Substance: VOXELOTOR
     Indication: Sickle cell disease
     Dosage: DISSOLVE 1 TABLET IN 10 ML OF CLEAR ROOM TEMPERATURE LIQUID GIVE VIA NASO-GASTRIC TUBE
     Route: 050
     Dates: start: 202211
  2. OXBRYTA [Suspect]
     Active Substance: VOXELOTOR
     Indication: Sickle cell disease
     Dosage: DISSOLVE 1 TABLET IN 10 ML OF CLEAR ROOM TEMPERATURE LIQUID GIVE VIA NASO-GASTRIC TUBE
     Route: 050
     Dates: start: 20230401

REACTIONS (4)
  - Abdominal distension [Unknown]
  - Therapy interrupted [Unknown]
  - Off label use [Unknown]
  - Incorrect route of product administration [Unknown]

NARRATIVE: CASE EVENT DATE: 20221101
